FAERS Safety Report 25621483 (Version 1)
Quarter: 2025Q3

REPORT INFORMATION
  Report Type: Spontaneous
  Country: JP (occurrence: JP)
  Receive Date: 20250730
  Receipt Date: 20250730
  Transmission Date: 20251020
  Serious: Yes (Death, Other)
  Sender: RANBAXY
  Company Number: JP-SUN PHARMACEUTICAL INDUSTRIES LTD-2025R1-517623

PATIENT
  Age: 5 Decade
  Sex: Female

DRUGS (4)
  1. TIZANIDINE [Interacting]
     Active Substance: TIZANIDINE
     Indication: Product used for unknown indication
     Route: 065
  2. CARISOPRODOL [Interacting]
     Active Substance: CARISOPRODOL
     Indication: Product used for unknown indication
     Route: 065
  3. MEPROBAMATE [Interacting]
     Active Substance: MEPROBAMATE
     Indication: Product used for unknown indication
     Route: 065
  4. CHLORPHENIRAMINE [Interacting]
     Active Substance: CHLORPHENIRAMINE
     Indication: Product used for unknown indication
     Route: 065

REACTIONS (2)
  - Respiratory depression [Fatal]
  - Drug interaction [Fatal]
